FAERS Safety Report 17463782 (Version 1)
Quarter: 2020Q1

REPORT INFORMATION
  Report Type: Spontaneous
  Country: US (occurrence: US)
  Receive Date: 20200226
  Receipt Date: 20200226
  Transmission Date: 20200409
  Serious: No
  Sender: FDA-Public Use
  Company Number: US-MERZ PHARMACEUTICALS GMBH-20-00211

PATIENT
  Sex: Female

DRUGS (3)
  1. XEOMIN [Suspect]
     Active Substance: INCOBOTULINUMTOXINA
     Indication: SKIN COSMETIC PROCEDURE
  2. XEOMIN [Suspect]
     Active Substance: INCOBOTULINUMTOXINA
     Indication: SKIN COSMETIC PROCEDURE
     Dates: start: 20191223, end: 20191223
  3. XEOMIN [Suspect]
     Active Substance: INCOBOTULINUMTOXINA

REACTIONS (4)
  - Injection site bruising [Unknown]
  - Off label use [Unknown]
  - Eyelid ptosis [Unknown]
  - Brow ptosis [Unknown]

NARRATIVE: CASE EVENT DATE: 20191223
